FAERS Safety Report 6813499-8 (Version None)
Quarter: 2010Q3

REPORT INFORMATION
  Report Type: 
  Country: None (occurrence: None)
  Receive Date: 20100701
  Receipt Date: 20100625
  Transmission Date: 20110219
  Serious: No
  Sender: FDA-Public Use
  Company Number: JP-B.I. PHARMACEUTICALS,INC./RIDGEFIELD-2010-BP-06470NB

PATIENT
  Sex: Male
  Weight: 61.1 kg

DRUGS (3)
  1. BI-SIFROL TABLETS [Suspect]
     Indication: PARKINSONISM
     Dosage: 0.25 MG
     Route: 048
     Dates: start: 20100430, end: 20100512
  2. GASMOTIN [Suspect]
     Indication: ABDOMINAL DISCOMFORT
     Dosage: 15 MG
     Route: 048
     Dates: start: 20100430, end: 20100512
  3. NAUZELIN [Suspect]
     Indication: ABDOMINAL DISCOMFORT
     Dosage: 30 MG
     Route: 048
     Dates: start: 20100430, end: 20100512

REACTIONS (2)
  - ABDOMINAL DISCOMFORT [None]
  - HEPATIC FUNCTION ABNORMAL [None]
